FAERS Safety Report 4334798-8 (Version None)
Quarter: 2004Q2

REPORT INFORMATION
  Report Type: 
  Country: None (occurrence: None)
  Receive Date: 20040407
  Receipt Date: 20040407
  Transmission Date: 20050107
  Serious: Yes (Death, Life-Threatening)
  Sender: FDA-Public Use
  Company Number: None

PATIENT
  Age: 6 Year
  Sex: Male
  Weight: 20.05 kg

DRUGS (7)
  1. CARBOPLATIN [Suspect]
     Indication: NEUROBLASTOMA
     Dosage: 310 MG X 4 DAYS
     Dates: start: 20040302
  2. ETOPOSIDE [Suspect]
     Dosage: VP16-250 MGS X 4 DAYS
     Dates: start: 20040305
  3. MELPHALAN [Suspect]
     Dosage: 50 MGS X 3 DAYS
  4. NEUPOGEN [Concomitant]
  5. ENOXAPRIN [Concomitant]
  6. ACYLOVIR [Concomitant]
  7. ANTIFUNGALS [Concomitant]

REACTIONS (2)
  - MULTI-ORGAN FAILURE [None]
  - VENOOCCLUSIVE DISEASE [None]
